FAERS Safety Report 19499713 (Version 3)
Quarter: 2022Q2

REPORT INFORMATION
  Report Type: Spontaneous
  Country: CA (occurrence: CA)
  Receive Date: 20210706
  Receipt Date: 20220415
  Transmission Date: 20220720
  Serious: Yes (Life-Threatening, Hospitalization, Other)
  Sender: FDA-Public Use
  Company Number: CA-GLAXOSMITHKLINE-CACH2021GSK043123

PATIENT
  Age: 10 Year
  Sex: Male

DRUGS (6)
  1. IBUPROFEN [Interacting]
     Active Substance: IBUPROFEN
     Indication: Femur fracture
     Dosage: 600 MG, QID
  2. HYDROMORPHONE [Interacting]
     Active Substance: HYDROMORPHONE
     Indication: Femur fracture
     Dosage: 1 MG, QID
  3. DDAVP [Interacting]
     Active Substance: DESMOPRESSIN ACETATE
     Indication: Diabetes insipidus
     Dosage: 1.6 MG, QID
     Route: 048
  4. DDAVP [Interacting]
     Active Substance: DESMOPRESSIN ACETATE
     Dosage: 0.6 MG, PRN
     Route: 048
  5. DDAVP [Interacting]
     Active Substance: DESMOPRESSIN ACETATE
     Dosage: 0.5 MG, BID
     Route: 048
  6. HYDROCORTISONE [Concomitant]
     Active Substance: HYDROCORTISONE
     Indication: Diabetes insipidus
     Dosage: 6 MG, BID
     Route: 048

REACTIONS (10)
  - Hyponatraemia [Recovered/Resolved]
  - Seizure [Recovered/Resolved]
  - Hypertonia [Recovered/Resolved]
  - Bruxism [Recovered/Resolved]
  - Unresponsive to stimuli [Recovered/Resolved]
  - Apnoea [Recovered/Resolved]
  - Lethargy [Recovered/Resolved]
  - Blood sodium decreased [Recovered/Resolved]
  - Potentiating drug interaction [Recovered/Resolved]
  - Off label use [Recovered/Resolved]
